FAERS Safety Report 10020312 (Version 1)
Quarter: 2014Q1

REPORT INFORMATION
  Report Type: Spontaneous
  Country: US (occurrence: US)
  Receive Date: 20140319
  Receipt Date: 20140319
  Transmission Date: 20141002
  Serious: No
  Sender: FDA-Public Use
  Company Number: US-009507513-1403USA008119

PATIENT
  Age: 20 Year
  Sex: Female
  Weight: 65.76 kg

DRUGS (4)
  1. IMPLANON [Suspect]
     Indication: CONTRACEPTION
     Dosage: 3 YEAR IMPLANT
     Route: 059
     Dates: start: 20130320
  2. WELLBUTRIN [Concomitant]
  3. QUETIAPINE FUMARATE [Concomitant]
  4. ADDERALL TABLETS [Concomitant]

REACTIONS (4)
  - Menorrhagia [Unknown]
  - Amenorrhoea [Unknown]
  - Dizziness [Unknown]
  - Logorrhoea [Unknown]
